FAERS Safety Report 16253781 (Version 1)
Quarter: 2019Q2

REPORT INFORMATION
  Report Type: Spontaneous
  Country: US (occurrence: US)
  Receive Date: 20190430
  Receipt Date: 20190430
  Transmission Date: 20190711
  Serious: Yes (Other)
  Sender: FDA-Public Use
  Company Number: US-SA-2019SA113937

PATIENT
  Age: 38 Year
  Sex: Male

DRUGS (34)
  1. EMTRICITABINE/TENOFOVIR DISOPROXIL FUMARATE [Suspect]
     Active Substance: EMTRICITABINE\TENOFOVIR DISOPROXIL FUMARATE
     Dosage: UNK, QOD
  2. PITAVASTATIN. [Concomitant]
     Active Substance: PITAVASTATIN CALCIUM
  3. EMTRICITABINE/TENOFOVIR DISOPROXIL FUMARATE [Suspect]
     Active Substance: EMTRICITABINE\TENOFOVIR DISOPROXIL FUMARATE
     Indication: HIV INFECTION
     Dosage: UNK UNK, QD
  4. DARUNAVIR [Suspect]
     Active Substance: DARUNAVIR
     Indication: HIV INFECTION
  5. ASPIRIN [ACETYLSALICYLIC ACID] [Concomitant]
     Active Substance: ASPIRIN
  6. FEXOFENADINE [Concomitant]
     Active Substance: FEXOFENADINE\FEXOFENADINE HYDROCHLORIDE
  7. OMEPRAZOLE. [Concomitant]
     Active Substance: OMEPRAZOLE
  8. OXYBUTYNIN. [Concomitant]
     Active Substance: OXYBUTYNIN CHLORIDE
  9. VENLAFAXINE [Concomitant]
     Active Substance: VENLAFAXINE HYDROCHLORIDE
  10. PATIROMER [Concomitant]
     Active Substance: PATIROMER
  11. INSULIN [Concomitant]
     Active Substance: INSULIN NOS
  12. FISH OIL [Concomitant]
     Active Substance: FISH OIL
  13. BECLOMETHASONE [BECLOMETASONE] [Concomitant]
     Active Substance: BECLOMETHASONE
     Route: 055
  14. GABAPENTIN. [Concomitant]
     Active Substance: GABAPENTIN
  15. ENFUVIRTIDE. [Concomitant]
     Active Substance: ENFUVIRTIDE
  16. RIBAVIRIN. [Suspect]
     Active Substance: RIBAVIRIN
     Indication: HEPATITIS C
     Dosage: UNK
  17. GEMFIBROZIL. [Concomitant]
     Active Substance: GEMFIBROZIL
  18. ALBUTEROL SULFATE. [Concomitant]
     Active Substance: ALBUTEROL SULFATE
     Route: 055
  19. RALTEGRAVIR. [Suspect]
     Active Substance: RALTEGRAVIR
     Indication: HIV INFECTION
  20. RITONAVIR. [Concomitant]
     Active Substance: RITONAVIR
     Indication: HIV INFECTION
  21. LISINOPRIL. [Concomitant]
     Active Substance: LISINOPRIL
  22. CHOLECALCIFEROL [Concomitant]
     Active Substance: CHOLECALCIFEROL
  23. TAMSULOSIN HYDROCHLORIDE. [Suspect]
     Active Substance: TAMSULOSIN HYDROCHLORIDE
  24. LAMIVUDINE. [Concomitant]
     Active Substance: LAMIVUDINE
     Indication: HIV INFECTION
  25. DOLUTEGRAVIR [Concomitant]
     Active Substance: DOLUTEGRAVIR
  26. ATENOLOL. [Concomitant]
     Active Substance: ATENOLOL
  27. FENOFIBRATE. [Concomitant]
     Active Substance: FENOFIBRATE
  28. ASCORBIC ACID. [Concomitant]
     Active Substance: ASCORBIC ACID
  29. FINASTERIDE. [Concomitant]
     Active Substance: FINASTERIDE
  30. PRAVASTATIN SODIUM. [Suspect]
     Active Substance: PRAVASTATIN SODIUM
  31. RIBAVIRIN. [Suspect]
     Active Substance: RIBAVIRIN
     Dosage: UNK
  32. SODIUM BICARBONATE. [Concomitant]
     Active Substance: SODIUM BICARBONATE
  33. AMLODIPINE [Concomitant]
     Active Substance: AMLODIPINE BESYLATE
  34. MIRTAZAPINE. [Concomitant]
     Active Substance: MIRTAZAPINE

REACTIONS (5)
  - Urticaria [Unknown]
  - Renal impairment [Unknown]
  - Focal segmental glomerulosclerosis [Unknown]
  - Toxicity to various agents [Unknown]
  - Myalgia [Unknown]
